FAERS Safety Report 6572517-5 (Version None)
Quarter: 2010Q1

REPORT INFORMATION
  Report Type: 
  Country: None (occurrence: None)
  Receive Date: 20100205
  Receipt Date: 20100202
  Transmission Date: 20100710
  Serious: Yes (Hospitalization, Other)
  Sender: FDA-Public Use
  Company Number: US-ROXANE LABORATORIES, INC.-2010-RO-00121RO

PATIENT
  Age: 34 Year
  Sex: Male

DRUGS (11)
  1. COCAINE [Suspect]
  2. MARIJUANA [Suspect]
  3. HALLUCINOGENS [Suspect]
  4. ALCOHOL [Suspect]
  5. ANABOLIC-ANDROGENIC STEROIDS [Suspect]
  6. ANABOLIC-ANDROGENIC STEROIDS [Suspect]
  7. TESTOSTERONE ESTERS [Suspect]
  8. TESTOSTERONE ESTERS [Suspect]
  9. NANDROLONE DECANOATE [Suspect]
  10. METHENOLONE [Suspect]
     Dosage: 50 MG
     Route: 048
  11. OXYCONTIN [Suspect]
     Dosage: 300 MG

REACTIONS (12)
  - DEPENDENCE [None]
  - DEPRESSED MOOD [None]
  - DRUG DEPENDENCE [None]
  - FATIGUE [None]
  - FEAR [None]
  - GYNAECOMASTIA [None]
  - IRRITABILITY [None]
  - LIBIDO DECREASED [None]
  - LOSS OF LIBIDO [None]
  - POLYSUBSTANCE DEPENDENCE [None]
  - TOTAL CHOLESTEROL/HDL RATIO DECREASED [None]
  - TOTAL CHOLESTEROL/HDL RATIO INCREASED [None]
